FAERS Safety Report 8215384-6 (Version None)
Quarter: 2012Q1

REPORT INFORMATION
  Report Type: 
  Country: None (occurrence: None)
  Receive Date: 20120314
  Receipt Date: 20120228
  Transmission Date: 20120608
  Serious: Yes (Other)
  Sender: FDA-Public Use
  Company Number: FK201200679

PATIENT
  Age: 49 Year
  Sex: Female

DRUGS (3)
  1. HYDROXYCHLOROQUINE SULFATE [Suspect]
     Indication: ARTHRITIS
  2. PREDNISONE [Suspect]
     Indication: ARTHRITIS
  3. METHOTREXATE [Suspect]
     Indication: ARTHRITIS

REACTIONS (3)
  - GASTROOESOPHAGEAL REFLUX DISEASE [None]
  - ALOPECIA [None]
  - PHOTOSENSITIVITY REACTION [None]
